FAERS Safety Report 15546424 (Version 3)
Quarter: 2019Q4

REPORT INFORMATION
  Report Type: Spontaneous
  Country: VN (occurrence: VN)
  Receive Date: 20181024
  Receipt Date: 20191017
  Transmission Date: 20200122
  Serious: Yes (Life-Threatening, Hospitalization)
  Sender: FDA-Public Use
  Company Number: VN-BAYER-2018-194329

PATIENT
  Age: 55 Year
  Sex: Female

DRUGS (1)
  1. CIPROBAY 200/100 MG/ML [Suspect]
     Active Substance: CIPROFLOXACIN
     Indication: CALCULUS URINARY
     Dosage: 800 MG, UNK
     Route: 042
     Dates: start: 20181016, end: 20181016

REACTIONS (4)
  - Dyspnoea [Recovering/Resolving]
  - Anal incontinence [Recovering/Resolving]
  - Hypoaesthesia [Recovering/Resolving]
  - Chills [Recovering/Resolving]

NARRATIVE: CASE EVENT DATE: 20181016
